FAERS Safety Report 14919225 (Version 1)
Quarter: 2018Q2

REPORT INFORMATION
  Report Type: Report from Study
  Country: US (occurrence: US)
  Receive Date: 20180521
  Receipt Date: 20180521
  Transmission Date: 20180711
  Serious: Yes (Other)
  Sender: FDA-Public Use
  Company Number: US-JNJFOC-20180511199

PATIENT
  Age: 67 Year
  Sex: Female
  Weight: 74.84 kg

DRUGS (2)
  1. STELARA [Suspect]
     Active Substance: USTEKINUMAB
     Indication: CROHN^S DISEASE
     Route: 042
     Dates: start: 20180214
  2. STELARA [Suspect]
     Active Substance: USTEKINUMAB
     Indication: CROHN^S DISEASE
     Route: 042
     Dates: start: 20180423, end: 20180507

REACTIONS (10)
  - Swollen tongue [Recovered/Resolved]
  - Oedema [Not Recovered/Not Resolved]
  - Dizziness [Not Recovered/Not Resolved]
  - Posterior reversible encephalopathy syndrome [Unknown]
  - Pharyngeal oedema [Recovered/Resolved]
  - Pyrexia [Recovered/Resolved]
  - Speech disorder [Not Recovered/Not Resolved]
  - Unevaluable event [Recovered/Resolved]
  - Respiratory disorder [Not Recovered/Not Resolved]
  - Rash [Not Recovered/Not Resolved]

NARRATIVE: CASE EVENT DATE: 20180216
